FAERS Safety Report 13426282 (Version 1)
Quarter: 2017Q2

REPORT INFORMATION
  Report Type: Spontaneous
  Country: US (occurrence: US)
  Receive Date: 20170411
  Receipt Date: 20170411
  Transmission Date: 20170830
  Serious: No
  Sender: FDA-Public Use
  Company Number: US-JNJFOC-20170221397

PATIENT
  Sex: Female
  Weight: 74.39 kg

DRUGS (6)
  1. ONDANSETRON [Concomitant]
     Active Substance: ONDANSETRON
     Indication: NAUSEA
     Dosage: 1 DISPERSABLE TABLET EVERY SIX TO EIGHT HOURS AS NEEDED
     Route: 048
  2. VYVANSE [Concomitant]
     Active Substance: LISDEXAMFETAMINE DIMESYLATE
     Dosage: IN THE MORNING
     Route: 048
  3. REMICADE [Suspect]
     Active Substance: INFLIXIMAB
     Indication: COLITIS ULCERATIVE
     Route: 042
  4. CITALOPRAM HYDROBROMIDE. [Concomitant]
     Active Substance: CITALOPRAM HYDROBROMIDE
     Route: 048
  5. NORCO [Concomitant]
     Active Substance: ACETAMINOPHEN\HYDROCODONE BITARTRATE
     Indication: PAIN
     Dosage: 1/2 TABLET AS NEEDED
     Route: 048
  6. MERCAPTOPURINE. [Concomitant]
     Active Substance: MERCAPTOPURINE
     Route: 048

REACTIONS (16)
  - Fatigue [Unknown]
  - Depression [Unknown]
  - Lymphadenopathy [Unknown]
  - Abdominal pain [Unknown]
  - Chest pain [Unknown]
  - Diarrhoea [Unknown]
  - Headache [Unknown]
  - Sinus disorder [Unknown]
  - Pulmonary mass [Unknown]
  - Myalgia [Unknown]
  - Arthralgia [Unknown]
  - Epigastric discomfort [Unknown]
  - Upper-airway cough syndrome [Unknown]
  - Pruritus [Unknown]
  - Anosmia [Unknown]
  - Oropharyngeal pain [Unknown]
